FAERS Safety Report 9099937 (Version 5)
Quarter: 2013Q2

REPORT INFORMATION
  Report Type: Spontaneous
  Country: DE (occurrence: DE)
  Receive Date: 20130214
  Receipt Date: 20130628
  Transmission Date: 20140414
  Serious: Yes (Other)
  Sender: FDA-Public Use
  Company Number: DE-JNJFOC-20130106986

PATIENT
  Sex: Male

DRUGS (1)
  1. RISPERDAL CONSTA [Suspect]
     Indication: HALLUCINATION
     Route: 030

REACTIONS (7)
  - Confusional state [Unknown]
  - Hallucination, auditory [Unknown]
  - Panic attack [Unknown]
  - Drug ineffective [Unknown]
  - Abnormal behaviour [Unknown]
  - Somnolence [Unknown]
  - Nightmare [Unknown]
